FAERS Safety Report 8403856-0 (Version None)
Quarter: 2012Q2

REPORT INFORMATION
  Report Type: 
  Country: None (occurrence: None)
  Receive Date: 20120601
  Receipt Date: 20120525
  Transmission Date: 20120825
  Serious: Yes (Hospitalization)
  Sender: FDA-Public Use
  Company Number: US-ASTRAZENECA-2011SE41550

PATIENT
  Age: 53 Year
  Sex: Female

DRUGS (22)
  1. LISINOPRIL [Concomitant]
     Indication: HYPERTENSION
  2. EXFORGE [Concomitant]
     Dosage: 10/160 DAILY
     Dates: start: 20100421
  3. PHENERGAN [Concomitant]
     Dosage: 10 MG BED TIME
     Dates: start: 20100421
  4. NEXIUM [Suspect]
     Indication: GASTROOESOPHAGEAL REFLUX DISEASE
     Dosage: DAILY
     Route: 048
  5. PEPTO-BISMOL  OTC [Concomitant]
     Dosage: AS NEEDED
  6. SIMVASTATIN [Concomitant]
     Indication: MEDICAL DIET
  7. CLONIDINE [Concomitant]
     Dosage: DAILY
     Dates: start: 20100421
  8. KEFLEX [Concomitant]
     Dates: start: 20100421
  9. DECONAMINE SR [Concomitant]
     Dosage: ONE BED TIME
     Dates: start: 20100421
  10. VICODON [Concomitant]
     Indication: PAIN
  11. NEXIUM [Suspect]
     Route: 048
     Dates: start: 20040201, end: 20061101
  12. CRESTOR [Concomitant]
     Dates: start: 20100421
  13. LIPITOR [Concomitant]
  14. ACTOS [Concomitant]
  15. NEXIUM [Suspect]
     Route: 048
     Dates: start: 20040201, end: 20061101
  16. NEXIUM [Suspect]
     Route: 048
     Dates: start: 20040413
  17. NEXIUM [Suspect]
     Route: 048
     Dates: start: 20040413
  18. DIOVAN HCT [Concomitant]
  19. METAGLIP [Concomitant]
  20. NEXIUM [Suspect]
     Dosage: DAILY
     Route: 048
  21. METFORMIN HCL [Concomitant]
     Indication: DIABETES MELLITUS
  22. AMLODIPINE [Concomitant]
     Indication: HYPERTENSION

REACTIONS (2)
  - UPPER LIMB FRACTURE [None]
  - DEPRESSION [None]
